FAERS Safety Report 12577286 (Version 1)
Quarter: 2016Q3

REPORT INFORMATION
  Report Type: Spontaneous
  Country: US (occurrence: US)
  Receive Date: 20160720
  Receipt Date: 20160720
  Transmission Date: 20161109
  Serious: No
  Sender: FDA-Public Use
  Company Number: US-PERRIGO-16US000174

PATIENT
  Age: 54 Year
  Sex: Female
  Weight: 49.89 kg

DRUGS (9)
  1. SULFAMETHOXAZOLE-TRIMETHOPRIM (SMZ) [Concomitant]
     Active Substance: SULFAMETHOXAZOLE\TRIMETHOPRIM
     Indication: URINARY TRACT INFECTION
     Dosage: UNK
     Route: 065
     Dates: start: 20151231
  2. MICONAZOLE 1 [Suspect]
     Active Substance: MICONAZOLE NITRATE
     Indication: VULVOVAGINAL MYCOTIC INFECTION
     Dosage: 1200 MG, SINGLE
     Route: 067
     Dates: start: 20160104, end: 20160104
  3. MICONAZOLE 1 [Suspect]
     Active Substance: MICONAZOLE NITRATE
     Indication: VULVOVAGINAL ERYTHEMA
  4. MICONAZOLE 1 [Suspect]
     Active Substance: MICONAZOLE NITRATE
     Indication: VULVOVAGINAL MYCOTIC INFECTION
     Dosage: 1 APPLICATION, QD
     Route: 061
     Dates: start: 20160104, end: 20160106
  5. MICONAZOLE 1 [Suspect]
     Active Substance: MICONAZOLE NITRATE
     Indication: VULVOVAGINAL PRURITUS
  6. MICONAZOLE 1 [Suspect]
     Active Substance: MICONAZOLE NITRATE
     Indication: VULVOVAGINAL DISCOMFORT
  7. MICONAZOLE 1 [Suspect]
     Active Substance: MICONAZOLE NITRATE
     Indication: VULVOVAGINAL DISCOMFORT
  8. MICONAZOLE 1 [Suspect]
     Active Substance: MICONAZOLE NITRATE
     Indication: VULVOVAGINAL ERYTHEMA
  9. MICONAZOLE 1 [Suspect]
     Active Substance: MICONAZOLE NITRATE
     Indication: VULVOVAGINAL PRURITUS

REACTIONS (6)
  - Drug ineffective [Unknown]
  - Condition aggravated [None]
  - Vulvovaginal burning sensation [Recovered/Resolved]
  - Vulvovaginal erythema [Recovering/Resolving]
  - Application site vesicles [None]
  - Vaginal mucosal blistering [Recovering/Resolving]

NARRATIVE: CASE EVENT DATE: 20160104
